FAERS Safety Report 9512347 (Version 1)
Quarter: 2013Q3

REPORT INFORMATION
  Report Type: Spontaneous
  Country: US (occurrence: US)
  Receive Date: 20130910
  Receipt Date: 20130910
  Transmission Date: 20140515
  Serious: No
  Sender: FDA-Public Use
  Company Number: -SAAVPROD-BMS19001627

PATIENT
  Age: 71 Year
  Sex: Female

DRUGS (1)
  1. AVAPRO TABS 150 MG [Suspect]
     Indication: BLOOD PRESSURE
     Dosage: 150MG TABS SPLIT INTO HALF:USED 5-8 YEARS

REACTIONS (7)
  - Gastrointestinal disorder [Unknown]
  - Abdominal discomfort [Unknown]
  - Nausea [Unknown]
  - Flatulence [Unknown]
  - Gastrointestinal sounds abnormal [Unknown]
  - Gastrooesophageal reflux disease [Unknown]
  - Wrong technique in drug usage process [Unknown]
